FAERS Safety Report 13739242 (Version 1)
Quarter: 2017Q3

REPORT INFORMATION
  Report Type: Spontaneous
  Country: US (occurrence: US)
  Receive Date: 20170710
  Receipt Date: 20170710
  Transmission Date: 20171127
  Serious: No
  Sender: FDA-Public Use
  Company Number: US-009507513-1706USA009493

PATIENT
  Age: 16 Year
  Sex: Female
  Weight: 76.64 kg

DRUGS (2)
  1. NEXPLANON [Suspect]
     Active Substance: ETONOGESTREL
     Indication: CONTRACEPTION
     Dosage: UNK, 3 YEARS
     Route: 059
     Dates: start: 20161122
  2. SEROQUEL [Concomitant]
     Active Substance: QUETIAPINE FUMARATE

REACTIONS (13)
  - Oral mucosal eruption [Unknown]
  - Headache [Unknown]
  - Chest pain [Unknown]
  - Pain in extremity [Unknown]
  - Poor quality sleep [Unknown]
  - Amenorrhoea [Unknown]
  - Anxiety [Unknown]
  - Dyspnoea [Unknown]
  - Implant site erythema [Unknown]
  - Weight increased [Unknown]
  - Hypoaesthesia [Unknown]
  - Lip swelling [Unknown]
  - Depression [Unknown]

NARRATIVE: CASE EVENT DATE: 201706
